FAERS Safety Report 7112523-5 (Version None)
Quarter: 2010Q4

REPORT INFORMATION
  Report Type: 
  Country: None (occurrence: None)
  Receive Date: 20101119
  Receipt Date: 20101115
  Transmission Date: 20110411
  Serious: Yes (Other)
  Sender: FDA-Public Use
  Company Number: US-BAYER-201041720NA

PATIENT
  Sex: Female

DRUGS (1)
  1. YASMIN [Suspect]
     Indication: PRODUCT USED FOR UNKNOWN INDICATION
     Route: 048
     Dates: start: 20040401, end: 20081201

REACTIONS (4)
  - GALLBLADDER DISORDER [None]
  - GASTROINTESTINAL DISORDER [None]
  - PAIN [None]
  - POST CHOLECYSTECTOMY SYNDROME [None]
